FAERS Safety Report 5921799-9 (Version None)
Quarter: 2008Q4

REPORT INFORMATION
  Report Type: 
  Country: None (occurrence: None)
  Receive Date: 20081017
  Receipt Date: 20081007
  Transmission Date: 20090506
  Serious: Yes (Death)
  Sender: FDA-Public Use
  Company Number: JACGER2000001605

PATIENT
  Sex: Male

DRUGS (10)
  1. TOPAMAX [Suspect]
     Route: 048
     Dates: start: 20000830
  2. TOPAMAX [Suspect]
     Route: 048
     Dates: start: 20000830
  3. TOPAMAX [Suspect]
     Indication: INFANTILE SPASMS
     Route: 048
     Dates: start: 20000830
  4. SULTIAM [Concomitant]
     Indication: INFANTILE SPASMS
     Route: 048
     Dates: start: 20000523
  5. ANTIPYRETIC DRUGS [Concomitant]
     Route: 065
  6. ACETAMINOPHEN [Concomitant]
     Route: 065
  7. METIMAZOLE [Concomitant]
     Route: 065
  8. HYDERGINE [Concomitant]
     Route: 065
  9. PETHIDIN [Concomitant]
     Route: 065
  10. PROMETHACIN [Concomitant]
     Route: 065

REACTIONS (16)
  - ACUTE HEPATIC FAILURE [None]
  - BLOOD GLUCOSE FLUCTUATION [None]
  - CANDIDIASIS [None]
  - DISSEMINATED INTRAVASCULAR COAGULATION [None]
  - DRUG INEFFECTIVE [None]
  - EPILEPSY [None]
  - HYPERPYREXIA [None]
  - MALAISE [None]
  - METABOLIC ACIDOSIS [None]
  - MULTI-ORGAN FAILURE [None]
  - MUSCLE NECROSIS [None]
  - PYREXIA [None]
  - RESTLESSNESS [None]
  - SHOCK [None]
  - STAPHYLOCOCCAL INFECTION [None]
  - SUDDEN DEATH [None]
